FAERS Safety Report 5491330-3 (Version None)
Quarter: 2007Q4

REPORT INFORMATION
  Report Type: 
  Country: None (occurrence: None)
  Receive Date: 20071017
  Receipt Date: 20071011
  Transmission Date: 20080405
  Serious: Yes (Hospitalization)
  Sender: FDA-Public Use
  Company Number: 2007SP020653

PATIENT
  Age: 64 Year
  Sex: Male

DRUGS (4)
  1. TEMODAL [Suspect]
     Indication: GLIOBLASTOMA MULTIFORME
  2. BACTRIM [Concomitant]
  3. DEXAMETHASONE 0.5MG TAB [Concomitant]
  4. DILANTIN [Concomitant]

REACTIONS (1)
  - MUCOSAL INFLAMMATION [None]
